FAERS Safety Report 20318640 (Version 1)
Quarter: 2022Q1

REPORT INFORMATION
  Report Type: Other
  Country: US (occurrence: None)
  Receive Date: 20220110
  Receipt Date: 20220110
  Transmission Date: 20220424
  Serious: Yes (Other)
  Sender: FDA-Public Use
  Company Number: US-ROCHE-2994494

PATIENT
  Age: 42 Year
  Sex: Male

DRUGS (2)
  1. VALCYTE [Suspect]
     Active Substance: VALGANCICLOVIR HYDROCHLORIDE
     Indication: Heart transplant
     Route: 048
  2. CELLCEPT [Suspect]
     Active Substance: MYCOPHENOLATE MOFETIL
     Indication: Heart transplant
     Dosage: FROM PROGRESS NOTES
     Route: 048

REACTIONS (8)
  - Cytomegalovirus infection [Recovering/Resolving]
  - Polymerase chain reaction [Recovering/Resolving]
  - Nasal sinus cancer [Unknown]
  - Leukopenia [Recovered/Resolved]
  - Hypothyroidism [Recovered/Resolved]
  - Hyperlipidaemia [Unknown]
  - Hypertension [Recovering/Resolving]
  - Osteopenia [Unknown]

NARRATIVE: CASE EVENT DATE: 20190610
